FAERS Safety Report 19942274 (Version 1)
Quarter: 2021Q4

REPORT INFORMATION
  Report Type: Report from Study
  Country: GB (occurrence: GB)
  Receive Date: 20211012
  Receipt Date: 20211012
  Transmission Date: 20220303
  Serious: Yes (Other)
  Sender: FDA-Public Use
  Company Number: GB-NOVARTISPH-NVSC2021GB228056

PATIENT
  Sex: Female

DRUGS (1)
  1. COSENTYX [Suspect]
     Active Substance: SECUKINUMAB
     Indication: Psoriatic arthropathy
     Dosage: 300 MG, QMO
     Route: 058
     Dates: start: 2020

REACTIONS (7)
  - Condition aggravated [Unknown]
  - Head injury [Unknown]
  - Pain [Unknown]
  - Inflammation [Unknown]
  - Fall [Unknown]
  - Foot fracture [Unknown]
  - Product dose omission issue [Unknown]
